FAERS Safety Report 25108836 (Version 1)
Quarter: 2025Q1

REPORT INFORMATION
  Report Type: Other
  Country: CZ (occurrence: CZ)
  Receive Date: 20250322
  Receipt Date: 20250322
  Transmission Date: 20250409
  Serious: Yes (Hospitalization, Other)
  Sender: ANI
  Company Number: CZ-ANIPHARMA-016100

PATIENT
  Age: 21 Year
  Sex: Female

DRUGS (6)
  1. SULFAMETHOXAZOLE\TRIMETHOPRIM [Suspect]
     Active Substance: SULFAMETHOXAZOLE\TRIMETHOPRIM
     Indication: Urinary tract infection
  2. RISPERIDONE [Suspect]
     Active Substance: RISPERIDONE
     Indication: Acute psychosis
  3. NITROFURANTOIN [Concomitant]
     Active Substance: NITROFURANTOIN
     Indication: Urinary tract infection
  4. DIAZEPAM [Concomitant]
     Active Substance: DIAZEPAM
     Indication: Acute psychosis
  5. AMISULPRIDE [Concomitant]
     Active Substance: AMISULPRIDE
     Indication: Acute psychosis
  6. OLANZAPINE [Concomitant]
     Active Substance: OLANZAPINE
     Indication: Acute psychosis

REACTIONS (2)
  - Acute psychosis [Recovering/Resolving]
  - Drug ineffective [Unknown]
